FAERS Safety Report 16270000 (Version 18)
Quarter: 2021Q4

REPORT INFORMATION
  Report Type: Spontaneous
  Country: US (occurrence: US)
  Receive Date: 20190503
  Receipt Date: 20211104
  Transmission Date: 20220303
  Serious: Yes (Hospitalization, Other)
  Sender: FDA-Public Use
  Company Number: US-PFIZER INC-2019185212

PATIENT
  Age: 78 Year
  Sex: Female
  Weight: 54 kg

DRUGS (10)
  1. CELEBREX [Suspect]
     Active Substance: CELECOXIB
     Indication: Bone pain
     Dosage: 200 MG, 1X/DAY
     Route: 048
  2. CELEBREX [Suspect]
     Active Substance: CELECOXIB
     Indication: Arthritis
  3. CELEBREX [Suspect]
     Active Substance: CELECOXIB
     Indication: Osteoarthritis
  4. CELEBREX [Suspect]
     Active Substance: CELECOXIB
     Indication: Bone disorder
  5. ATENOLOL AND CHLORTHALIDONE [Concomitant]
     Active Substance: ATENOLOL\CHLORTHALIDONE
     Dosage: UNK
  6. SENNATAB [Concomitant]
     Indication: Pain
     Dosage: UNK
  7. OXYCONTIN [Concomitant]
     Active Substance: OXYCODONE HYDROCHLORIDE
     Indication: Pain
     Dosage: 5 MG, UNK
     Route: 048
  8. METHADONE [Concomitant]
     Active Substance: METHADONE HYDROCHLORIDE
     Indication: Pain
     Dosage: 10 MG, 2X/DAY
     Route: 048
     Dates: start: 201904
  9. OXYCODONE [Concomitant]
     Active Substance: OXYCODONE
     Dosage: UNK
  10. METHOCARBAMOL [Concomitant]
     Active Substance: METHOCARBAMOL
     Dosage: UNK

REACTIONS (32)
  - Spinal fracture [Unknown]
  - Rib fracture [Unknown]
  - Pelvic fracture [Unknown]
  - Wrist fracture [Unknown]
  - Fall [Unknown]
  - Balance disorder [Unknown]
  - Urinary tract infection bacterial [Unknown]
  - Face injury [Unknown]
  - Aphasia [Unknown]
  - Dyspnoea [Unknown]
  - Balance disorder [Unknown]
  - Peripheral swelling [Unknown]
  - Dysphonia [Unknown]
  - Bedridden [Recovering/Resolving]
  - Pain [Not Recovered/Not Resolved]
  - Gait disturbance [Unknown]
  - Gastrointestinal disorder [Unknown]
  - Feeling abnormal [Unknown]
  - Body height decreased [Unknown]
  - Withdrawal syndrome [Not Recovered/Not Resolved]
  - Insomnia [Unknown]
  - Weight decreased [Not Recovered/Not Resolved]
  - Lymphoedema [Not Recovered/Not Resolved]
  - Movement disorder [Unknown]
  - Joint swelling [Unknown]
  - Blood sodium decreased [Unknown]
  - Diarrhoea [Unknown]
  - Tremor [Unknown]
  - Feeling abnormal [Unknown]
  - Skin discomfort [Unknown]
  - Arthralgia [Unknown]
  - Joint swelling [Unknown]

NARRATIVE: CASE EVENT DATE: 20180404
